FAERS Safety Report 23082725 (Version 1)
Quarter: 2023Q4

REPORT INFORMATION
  Report Type: Report from Study
  Country: US (occurrence: None)
  Receive Date: 20231019
  Receipt Date: 20231019
  Transmission Date: 20240110
  Serious: Yes (Hospitalization, Other)
  Sender: FDA-Public Use
  Company Number: US-ROCHE-3438698

PATIENT
  Age: 69 Year
  Sex: Female
  Weight: 54.4 kg

DRUGS (5)
  1. MOSUNETUZUMAB [Suspect]
     Active Substance: MOSUNETUZUMAB
     Indication: B-cell lymphoma
     Dosage: ON 27/SEP/2023, SHE RECEIVED MOST RECENT DOSE OF MOSUNETUZUMAB FOR HER CYCLE 8 DAY 1
     Route: 058
     Dates: start: 20230503
  2. LENALIDOMIDE [Suspect]
     Active Substance: LENALIDOMIDE
     Indication: B-cell lymphoma
     Dosage: ON DAY 1 THROUGH 21 FOR THE 3 WEEK CYCLE
     Route: 048
     Dates: start: 20230503
  3. ACETAMINOPHEN [Concomitant]
     Active Substance: ACETAMINOPHEN
     Indication: Back pain
  4. LIDOCAINE [Concomitant]
     Active Substance: LIDOCAINE
     Indication: Back pain
  5. METHOCARBAMOL [Concomitant]
     Active Substance: METHOCARBAMOL
     Indication: Back pain

REACTIONS (2)
  - Asthenia [Unknown]
  - Lumbar vertebral fracture [Unknown]

NARRATIVE: CASE EVENT DATE: 20231005
